FAERS Safety Report 13590044 (Version 1)
Quarter: 2017Q2

REPORT INFORMATION
  Report Type: Report from Study
  Country: CA (occurrence: CA)
  Receive Date: 20170530
  Receipt Date: 20170530
  Transmission Date: 20170830
  Serious: Yes (Hospitalization)
  Sender: FDA-Public Use
  Company Number: CA-EMD SERONO-E2B_80054736

PATIENT
  Age: 50 Year
  Sex: Male
  Weight: 68 kg

DRUGS (20)
  1. AVELUMAB [Suspect]
     Active Substance: AVELUMAB
     Indication: SQUAMOUS CELL CARCINOMA OF HEAD AND NECK
     Dosage: 680 MG, ON DAY 1 AND DAY 15 OF EACH CYCLE
     Route: 042
     Dates: start: 20161019, end: 20161116
  2. PANTOPRAZOLE [Concomitant]
     Active Substance: PANTOPRAZOLE
     Indication: PRODUCT USED FOR UNKNOWN INDICATION
     Dosage: 40 MG, DAILY
     Route: 042
     Dates: start: 20161117
  3. HALDOL [Concomitant]
     Active Substance: HALOPERIDOL
     Indication: NAUSEA
     Dosage: 0.5 MG, DAILY AT NIGHT
     Route: 042
     Dates: start: 20161117, end: 20161118
  4. CLONAZEPAM. [Concomitant]
     Active Substance: CLONAZEPAM
     Indication: ANXIETY
     Dosage: 0.5 MG, AS NEEDED EVERY 8 HOURS
     Route: 048
     Dates: start: 201110
  5. GRAVOL [Concomitant]
     Active Substance: DIMENHYDRINATE
     Indication: NAUSEA
     Dosage: 25-50 MG EVERY 6 HOURS, AS NEEDED
     Route: 042
     Dates: start: 20161117, end: 20161124
  6. ONDANSETRON [Concomitant]
     Active Substance: ONDANSETRON
     Indication: VOMITING
  7. ROBAXACET [Concomitant]
     Active Substance: ACETAMINOPHEN\METHOCARBAMOL
     Indication: BACK PAIN
     Dosage: 2 DF, 3X/DAY
     Route: 048
     Dates: start: 20161108, end: 20161115
  8. DEXAMETHASONE. [Concomitant]
     Active Substance: DEXAMETHASONE
     Indication: VOMITING
  9. HALDOL [Concomitant]
     Active Substance: HALOPERIDOL
     Indication: VOMITING
  10. FRAGMIN [Concomitant]
     Active Substance: DALTEPARIN SODIUM
     Dosage: 5000 IU, UNK
     Route: 058
     Dates: start: 20161118, end: 20161124
  11. TYLENOL WITH CODEINE [Concomitant]
     Active Substance: ACETAMINOPHEN\CODEINE PHOSPHATE
     Indication: PAIN IN EXTREMITY
  12. GRAVOL [Concomitant]
     Active Substance: DIMENHYDRINATE
     Indication: VOMITING
     Dosage: 25-50 MG EVERY 6 HOURS, AS NEEDED
     Route: 048
     Dates: start: 20161117, end: 20161124
  13. DEXAMETHASONE. [Concomitant]
     Active Substance: DEXAMETHASONE
     Indication: NAUSEA
     Dosage: 4 MG, 2X/DAY
     Route: 042
     Dates: start: 20161117, end: 20161118
  14. ONDANSETRON [Concomitant]
     Active Substance: ONDANSETRON
     Indication: NAUSEA
     Dosage: 8 MG, EVERY 8 HOURS AS NEEDED
     Route: 042
     Dates: start: 20161117, end: 20161124
  15. HYDROMORPHONE [Concomitant]
     Active Substance: HYDROMORPHONE
     Indication: BACK PAIN
     Dosage: 1-2 MG AS NEEDED AT NIGHT
     Route: 048
     Dates: start: 20161117
  16. IBUPROFEN. [Concomitant]
     Active Substance: IBUPROFEN
     Indication: BACK PAIN
     Dosage: 2 DF, 3X/DAY
     Route: 048
     Dates: start: 20161108, end: 20161115
  17. PF-05082566 [Suspect]
     Active Substance: INVESTIGATIONAL PRODUCT
     Indication: SQUAMOUS CELL CARCINOMA OF HEAD AND NECK
     Dosage: 100 MG, ON DAY 1 OF EACH CYCLE
     Route: 042
     Dates: start: 20161019, end: 20161116
  18. TYLENOL WITH CODEINE [Concomitant]
     Active Substance: ACETAMINOPHEN\CODEINE PHOSPHATE
     Indication: MUSCULOSKELETAL PAIN
     Dosage: 2-4 DF DAILY, AS NEEDED
     Route: 048
     Dates: start: 201402
  19. FRAGMIN [Concomitant]
     Active Substance: DALTEPARIN SODIUM
     Indication: PROPHYLAXIS
     Dosage: 5000 IU, UNK
     Route: 042
     Dates: start: 20161118, end: 20161124
  20. OXYCODONE [Concomitant]
     Active Substance: OXYCODONE
     Indication: PAIN
     Dosage: 2 TABLETS, TWICE PER DAY
     Route: 048
     Dates: start: 20161115, end: 20161117

REACTIONS (2)
  - Diabetic ketoacidosis [Recovered/Resolved]
  - Diabetes mellitus [Not Recovered/Not Resolved]

NARRATIVE: CASE EVENT DATE: 20161115
